FAERS Safety Report 10265206 (Version 1)
Quarter: 2014Q2

REPORT INFORMATION
  Report Type: Spontaneous
  Country: US (occurrence: None)
  Receive Date: 20140625
  Receipt Date: 20140625
  Transmission Date: 20141212
  Serious: Yes (Hospitalization)
  Sender: FDA-Public Use
  Company Number: None

PATIENT
  Age: 38 Year
  Sex: Female
  Weight: 72.58 kg

DRUGS (2)
  1. EXJADE [Suspect]
     Indication: SICKLE CELL ANAEMIA
     Route: 048
     Dates: start: 20130521, end: 20140403
  2. FOLIC ACID [Concomitant]

REACTIONS (1)
  - Acute hepatic failure [None]
